FAERS Safety Report 4744378-8 (Version None)
Quarter: 2005Q3

REPORT INFORMATION
  Report Type: 
  Country: None (occurrence: None)
  Receive Date: 20050809
  Receipt Date: 20050725
  Transmission Date: 20060218
  Serious: Yes (Death, Life-Threatening, Hospitalization)
  Sender: FDA-Public Use
  Company Number: HQWYE444825JUL05

PATIENT
  Age: 23 Year
  Sex: Female

DRUGS (3)
  1. ADVIL [Suspect]
  2. COCAINE (COCAINE,) [Suspect]
  3. WELLBUTRIN [Suspect]
     Dosage: ORAL
     Route: 048

REACTIONS (3)
  - CONVULSION [None]
  - DRUG ABUSER [None]
  - MULTIPLE DRUG OVERDOSE [None]
